FAERS Safety Report 8381047-X (Version None)
Quarter: 2012Q2

REPORT INFORMATION
  Report Type: 
  Country: None (occurrence: None)
  Receive Date: 20120503
  Receipt Date: 20120419
  Transmission Date: 20120825
  Serious: Yes (Hospitalization, Disabling)
  Sender: FDA-Public Use
  Company Number: AECAN201100238

PATIENT
  Age: 53 Year
  Sex: Female

DRUGS (16)
  1. COLACE [Concomitant]
  2. SYMICORT [Concomitant]
  3. DAXAS [Concomitant]
  4. EURO-SENNA [Concomitant]
  5. PANTOLOC /01263201/ [Concomitant]
  6. ATIVAN [Concomitant]
  7. LASIX [Concomitant]
  8. EFFEXOR [Concomitant]
  9. COUMADIN [Concomitant]
  10. PROLASTIN-C [Suspect]
     Indication: ALPHA-1 ANTI-TRYPSIN DEFICIENCY
     Dosage: 5370 MG;QW;IV
     Route: 042
     Dates: start: 20110713
  11. HYDROMORPHONE HCL [Concomitant]
  12. FERROUS SULFATE TAB [Concomitant]
  13. LYRICA [Concomitant]
  14. ALBUTEROL [Concomitant]
  15. SPIRIVA [Concomitant]
  16. ELAVIL [Concomitant]

REACTIONS (13)
  - ARTHRALGIA [None]
  - HEADACHE [None]
  - BLOOD PRESSURE INCREASED [None]
  - PULMONARY EMBOLISM [None]
  - HAEMATOMA [None]
  - NERVE INJURY [None]
  - DEEP VEIN THROMBOSIS [None]
  - FALL [None]
  - INFLUENZA IMMUNISATION [None]
  - DECREASED APPETITE [None]
  - FEELING OF BODY TEMPERATURE CHANGE [None]
  - DYSPNOEA [None]
  - MALAISE [None]
